FAERS Safety Report 6496814-7 (Version None)
Quarter: 2009Q4

REPORT INFORMATION
  Report Type: 
  Country: None (occurrence: None)
  Receive Date: 20091125
  Receipt Date: 20090406
  Transmission Date: 20100525
  Serious: Yes (Other)
  Sender: FDA-Public Use
  Company Number: 2009BH005693

PATIENT
  Age: 54 Year
  Sex: Male

DRUGS (16)
  1. DIANEAL [Suspect]
     Indication: PERITONEAL DIALYSIS
     Dosage: 16.5 L; IP
     Route: 033
     Dates: start: 20030616
  2. DIANEAL PD-2 W/ DEXTROSE 1.5% [Suspect]
     Indication: PERITONEAL DIALYSIS
     Dosage: 2.5 L; IP
     Route: 033
     Dates: start: 20030616
  3. HEPARIN [Concomitant]
  4. ASPIRIN [Concomitant]
  5. DIFLUCAN [Concomitant]
  6. FOLIC ACID [Concomitant]
  7. K-DUR [Concomitant]
  8. MEGACE [Concomitant]
  9. LIPITOR [Concomitant]
  10. PRENAVITE [Concomitant]
  11. SENSIPAR [Concomitant]
  12. ZEMPLAR [Concomitant]
  13. PAXIL [Concomitant]
  14. PHENERGAN HCL [Concomitant]
  15. PRILOSEC [Concomitant]
  16. MIRAPEX [Concomitant]

REACTIONS (2)
  - PERITONEAL DIALYSIS COMPLICATION [None]
  - PERITONITIS BACTERIAL [None]
